FAERS Safety Report 5565272-9 (Version None)
Quarter: 2007Q4

REPORT INFORMATION
  Report Type: 
  Country: None (occurrence: None)
  Receive Date: 20071218
  Receipt Date: 20011130
  Transmission Date: 20080405
  Serious: Yes (Death)
  Sender: FDA-Public Use
  Company Number: JP-ROCHE-269621

PATIENT
  Age: 77 Year
  Sex: Male
  Weight: 65 kg

DRUGS (9)
  1. ROCEPHIN [Suspect]
     Route: 041
     Dates: start: 20010926, end: 20010929
  2. MINOCYCLINE HYDROCHLORIDE [Suspect]
     Route: 048
     Dates: start: 20010925, end: 20010929
  3. CRAVIT [Suspect]
     Route: 048
     Dates: start: 20010925, end: 20010929
  4. THEO-DUR [Concomitant]
     Dosage: STARTED OVER ONE YEAR AGO.
     Route: 048
  5. SPIROPENT [Concomitant]
     Dosage: STARTED OVER ONE YEAR AGO.
     Route: 048
  6. MUCOSOLVAN [Concomitant]
     Dosage: STARTED OVER ONE YEAR AGO.
  7. MUCODYNE [Concomitant]
     Dosage: STARTED OVER ONE YEAR AGO.
  8. GASTER [Concomitant]
     Indication: GASTRIC ULCER
     Dosage: STARTED OVER ONE YEAR AGO.
  9. SHO-SAIKO-TO [Concomitant]
     Indication: HEPATITIS
     Dosage: STARTED OVER ONE YEAR AGO.

REACTIONS (3)
  - EMPYEMA [None]
  - PNEUMONIA [None]
  - STEVENS-JOHNSON SYNDROME [None]
